FAERS Safety Report 4742419-5 (Version None)
Quarter: 2005Q3

REPORT INFORMATION
  Report Type: 
  Country: None (occurrence: None)
  Receive Date: 20050808
  Receipt Date: 20050726
  Transmission Date: 20060218
  Serious: Yes (Other)
  Sender: FDA-Public Use
  Company Number: 2005107109

PATIENT
  Sex: Male
  Weight: 106.5953 kg

DRUGS (6)
  1. VIAGRA [Suspect]
     Indication: MALE SEXUAL DYSFUNCTION
     Dosage: 50 MG (50 MG, AS NECESSARY), ORAL
     Route: 048
     Dates: start: 20000101
  2. VITAMIN C (VITAMIN C) [Concomitant]
  3. VITAMIN E [Concomitant]
  4. GARLIC (GARLIC) [Concomitant]
  5. GINSENG (GINSENG) [Concomitant]
  6. SAW PALMETTO (SAW PALMETTO) [Concomitant]

REACTIONS (4)
  - ANEURYSM [None]
  - ARTERIAL OCCLUSIVE DISEASE [None]
  - BLOOD CHOLESTEROL ABNORMAL [None]
  - BLOOD PRESSURE INCREASED [None]
